FAERS Safety Report 5090471-2 (Version None)
Quarter: 2006Q3

REPORT INFORMATION
  Report Type: 
  Country: None (occurrence: None)
  Receive Date: 20060828
  Receipt Date: 20060505
  Transmission Date: 20061208
  Serious: Yes (Other)
  Sender: FDA-Public Use
  Company Number: US-GLAXOSMITHKLINE-A0605082A

PATIENT
  Age: 20 Year
  Sex: Female

DRUGS (1)
  1. WELLBUTRIN [Suspect]
     Route: 048

REACTIONS (1)
  - CONVULSION [None]
